FAERS Safety Report 14602941 (Version 1)
Quarter: 2018Q1

REPORT INFORMATION
  Report Type: Spontaneous
  Country: US (occurrence: US)
  Receive Date: 20180306
  Receipt Date: 20180306
  Transmission Date: 20180509
  Serious: Yes (Other)
  Sender: FDA-Public Use
  Company Number: US-SA-2018SA057058

PATIENT
  Age: 78 Year
  Sex: Male

DRUGS (5)
  1. RIFAMPIN. [Suspect]
     Active Substance: RIFAMPIN
     Indication: INFECTION
  2. BCG FOR IMMUNOTHERAPY [Suspect]
     Active Substance: BACILLUS CALMETTE-GUERIN ANTIGEN, UNSPECIFIED SUBSTRAIN
     Indication: BLADDER CANCER
     Route: 043
  3. INH [Suspect]
     Active Substance: ISONIAZID
     Indication: INFECTION
  4. ETHAMBUTOL [Suspect]
     Active Substance: ETHAMBUTOL HYDROCHLORIDE
     Indication: INFECTION
  5. PYRIDOXINE [Suspect]
     Active Substance: PYRIDOXINE
     Indication: INFECTION

REACTIONS (13)
  - Lymphadenopathy [Recovered/Resolved]
  - Dysuria [Unknown]
  - Penile pain [Unknown]
  - Visual impairment [Unknown]
  - Hypoaesthesia [Unknown]
  - Granuloma [Recovered/Resolved]
  - Drug ineffective [Unknown]
  - Balanoposthitis infective [Unknown]
  - Groin pain [Unknown]
  - Nodule [Unknown]
  - Pyrexia [Unknown]
  - Granulomatous lymphadenitis [Recovered/Resolved]
  - Phimosis [Recovering/Resolving]
